FAERS Safety Report 13471313 (Version 3)
Quarter: 2017Q2

REPORT INFORMATION
  Report Type: Spontaneous
  Country: US (occurrence: US)
  Receive Date: 20170424
  Receipt Date: 20170511
  Transmission Date: 20170830
  Serious: Yes (Death, Hospitalization)
  Sender: FDA-Public Use
  Company Number: US-ROCHE-1922982

PATIENT
  Age: 50 Year
  Sex: Male

DRUGS (16)
  1. PREDNISONE. [Suspect]
     Active Substance: PREDNISONE
     Dosage: AND FINALLY TO 20 MG ONCE A DAY ON POD 7
     Route: 065
  2. CEFEPIME [Concomitant]
     Active Substance: CEFEPIME HYDROCHLORIDE
     Indication: INFECTION
     Route: 065
  3. BASILIXIMAB [Suspect]
     Active Substance: BASILIXIMAB
     Indication: IMMUNOSUPPRESSION
     Dosage: GIVEN ON THE DAY OF TRANSPLANTATION AND POSTOPERATIVE DAY (POD) 4.
     Route: 065
  4. SULFAMETHOXAZOLE/TRIMETHOPRIM [Concomitant]
     Active Substance: SULFAMETHOXAZOLE\TRIMETHOPRIM
     Indication: PROPHYLAXIS
     Dosage: 800/160 MG ONCE A DAY
     Route: 065
  5. METHYLPREDNISOLONE. [Suspect]
     Active Substance: METHYLPREDNISOLONE
     Route: 065
  6. OSELTAMIVIR [Concomitant]
     Active Substance: OSELTAMIVIR
     Route: 065
  7. PREDNISONE. [Suspect]
     Active Substance: PREDNISONE
     Indication: IMMUNOSUPPRESSION
     Dosage: 80 MG ON POD 3 AND TAPERED DOWN TO 60 MG ON POD 4, 40 MG ON POD 5, 30 MG ON POD 6, AND FINALLY TO 20
     Route: 065
  8. PREDNISONE. [Suspect]
     Active Substance: PREDNISONE
     Dosage: 40 MG ON POD 5
     Route: 065
  9. METHYLPREDNISOLONE. [Suspect]
     Active Substance: METHYLPREDNISOLONE
     Indication: IMMUNOSUPPRESSION
     Dosage: 250 MG ON POD 1 AND 2
     Route: 065
  10. PREDNISONE. [Suspect]
     Active Substance: PREDNISONE
     Dosage: TAPERED DOWN TO 60 MG ON POD 4
     Route: 065
  11. PREDNISONE. [Suspect]
     Active Substance: PREDNISONE
     Dosage: 30 MG ON POD 6, AND FINALLY TO 20 MG ONCE A DAY ON POD 7
     Route: 065
  12. VALGANCICLOVIR. [Concomitant]
     Active Substance: VALGANCICLOVIR
     Indication: PROPHYLAXIS
     Route: 065
  13. VANCOMYCIN [Concomitant]
     Active Substance: VANCOMYCIN
     Indication: INFECTION
     Route: 065
  14. MYCOPHENOLATE MOFETIL. [Suspect]
     Active Substance: MYCOPHENOLATE MOFETIL
     Indication: IMMUNOSUPPRESSION
     Route: 065
  15. TACROLIMUS. [Interacting]
     Active Substance: TACROLIMUS
     Indication: IMMUNOSUPPRESSION
     Route: 065
  16. TACROLIMUS. [Interacting]
     Active Substance: TACROLIMUS
     Dosage: 2-4 MG ONCE DAILY TO MAINTAIN TROUGH LEVELS OF 12.8-21.4 NG/ML
     Route: 065

REACTIONS (5)
  - Interstitial lung disease [Fatal]
  - Drug interaction [Fatal]
  - Respiratory failure [Fatal]
  - Bacterial sepsis [Fatal]
  - Overdose [Fatal]
